FAERS Safety Report 8427642-0 (Version None)
Quarter: 2012Q2

REPORT INFORMATION
  Report Type: 
  Country: None (occurrence: None)
  Receive Date: 20120611
  Receipt Date: 20120607
  Transmission Date: 20120825
  Serious: Yes (Other)
  Sender: FDA-Public Use
  Company Number: US-PFIZER INC-2012056004

PATIENT
  Sex: Male
  Weight: 79.365 kg

DRUGS (10)
  1. WARFARIN SODIUM [Suspect]
     Indication: ANTICOAGULANT THERAPY
     Dosage: 5 MG, DAILY
     Dates: start: 20110204
  2. WARFARIN SODIUM [Suspect]
     Dosage: UNK
     Dates: end: 20120101
  3. TIKOSYN [Suspect]
     Indication: HEART RATE INCREASED
  4. ASPIRIN [Suspect]
     Indication: CARDIAC DISORDER
     Dosage: 81 MG, UNK
     Dates: start: 20120213
  5. METOPROLOL TARTRATE [Suspect]
     Indication: ARRHYTHMIA
     Dosage: 25 MG, UNK
     Dates: start: 20110204
  6. METOPROLOL TARTRATE [Suspect]
     Indication: HYPERTENSION
     Dosage: UNK
     Dates: end: 20120101
  7. AMLODIPINE [Suspect]
     Dosage: UNK
     Dates: end: 20120101
  8. AMLODIPINE [Suspect]
     Dosage: 10 MG, DAILY
     Dates: start: 20110204
  9. TIKOSYN [Suspect]
     Indication: ATRIAL FIBRILLATION
     Dosage: 500 UG, 2X/DAY
     Dates: start: 20120213
  10. METOPROLOL TARTRATE [Suspect]
     Indication: HEART RATE INCREASED
     Dosage: 12.5 MG, UNK

REACTIONS (12)
  - DYSPNOEA [None]
  - PAIN IN EXTREMITY [None]
  - BREAST PAIN [None]
  - INSOMNIA [None]
  - ASTHENIA [None]
  - MUSCULOSKELETAL PAIN [None]
  - OEDEMA PERIPHERAL [None]
  - CHEST DISCOMFORT [None]
  - DIZZINESS [None]
  - MENTAL IMPAIRMENT [None]
  - DYSPEPSIA [None]
  - GAIT DISTURBANCE [None]
